FAERS Safety Report 4270817-5 (Version None)
Quarter: 2004Q1

REPORT INFORMATION
  Report Type: 
  Country: None (occurrence: None)
  Receive Date: 20040114
  Receipt Date: 20031107
  Transmission Date: 20041129
  Serious: Yes (Other)
  Sender: FDA-Public Use
  Company Number: GB-BRISTOL-MYERS SQUIBB COMPANY-12430948

PATIENT
  Age: 32 Year
  Sex: Female

DRUGS (4)
  1. HYDREA [Suspect]
     Indication: SICKLE CELL ANAEMIA
     Route: 048
     Dates: start: 20030514, end: 20031103
  2. PENICILLIN [Concomitant]
     Indication: PROPHYLAXIS
     Dosage: LIFELONG
     Route: 048
  3. FOLIC ACID [Concomitant]
     Indication: PROPHYLAXIS
     Dosage: LIFELONG
     Route: 048
  4. DEPO-PROVERA [Concomitant]
     Indication: CONTRACEPTION

REACTIONS (4)
  - ABORTION SPONTANEOUS [None]
  - DRUG EXPOSURE DURING PREGNANCY [None]
  - MATERNAL DRUGS AFFECTING FOETUS [None]
  - PREGNANCY ON ORAL CONTRACEPTIVE [None]
